FAERS Safety Report 7070770-5 (Version None)
Quarter: 2010Q4

REPORT INFORMATION
  Report Type: 
  Country: None (occurrence: None)
  Receive Date: 20101029
  Receipt Date: 20101014
  Transmission Date: 20110411
  Serious: Yes (Hospitalization)
  Sender: FDA-Public Use
  Company Number: US-BAYER-201035798NA

PATIENT
  Age: 31 Year
  Sex: Female
  Weight: 107 kg

DRUGS (20)
  1. YAZ [Suspect]
     Indication: PRODUCT USED FOR UNKNOWN INDICATION
     Route: 048
     Dates: start: 20070101, end: 20070818
  2. YASMIN [Suspect]
     Indication: PRODUCT USED FOR UNKNOWN INDICATION
     Dosage: PHARMACY RECORDS: DISPENSED FROM 13-MAR-2007 THROUGH 11-AUG-2007
     Route: 048
  3. DROSPIRENONE AND ETHINYL ESTRADIOL [Suspect]
     Indication: PRODUCT USED FOR UNKNOWN INDICATION
     Route: 048
  4. LEVOTHYROXINE [Concomitant]
     Route: 065
     Dates: start: 20010901
  5. BACLOFEN [Concomitant]
     Route: 048
  6. OXYCODONE HCL [Concomitant]
     Route: 048
  7. HYDROCODONE BITARTRATE + ACETAMINOPHEN [Concomitant]
     Dosage: 10 - 650 MG
     Route: 048
  8. HYDROCODONE BITARTRATE + ACETAMINOPHEN [Concomitant]
     Dosage: 10-500 MG
     Route: 048
  9. PROMETHAZINE [Concomitant]
     Route: 048
  10. ZYRTEC [Concomitant]
     Route: 065
  11. LORCET-HD [Concomitant]
     Route: 065
  12. AMITRIPTYLINE HCL [Concomitant]
     Route: 048
  13. TIZANIDINE HCL [Concomitant]
     Route: 048
  14. FLONASE [Concomitant]
     Route: 065
  15. TOPAMAX [Concomitant]
     Route: 048
     Dates: start: 20020901
  16. ALEVE (CAPLET) [Concomitant]
     Dosage: 20 DAYS PRIOR TO INJURY
     Route: 065
  17. ZANAFLEX [Concomitant]
     Route: 065
  18. ELAVIL [Concomitant]
     Route: 065
  19. ZANTAC [Concomitant]
     Route: 065
  20. IMMUNOGLOBULIN (IG) [Concomitant]
     Indication: SELECTIVE IGG SUBCLASS DEFICIENCY
     Route: 042
     Dates: start: 20060201

REACTIONS (6)
  - ARTHRALGIA [None]
  - DEEP VEIN THROMBOSIS [None]
  - HOMANS' SIGN [None]
  - INJURY [None]
  - OEDEMA PERIPHERAL [None]
  - PAIN IN EXTREMITY [None]
